FAERS Safety Report 6359540-0 (Version None)
Quarter: 2009Q3

REPORT INFORMATION
  Report Type: 
  Country: None (occurrence: None)
  Receive Date: 20090917
  Receipt Date: 20090908
  Transmission Date: 20100115
  Serious: Yes (Other)
  Sender: FDA-Public Use
  Company Number: CN-JNJFOC-20090902974

PATIENT
  Age: 11 Month
  Sex: Male
  Weight: 10 kg

DRUGS (4)
  1. CHILDREN'S MOTRIN [Suspect]
     Route: 048
  2. CHILDREN'S MOTRIN [Suspect]
     Indication: PYREXIA
     Route: 048
  3. INFANTS' TYLENOL [Suspect]
     Route: 048
  4. INFANTS' TYLENOL [Suspect]
     Indication: NASOPHARYNGITIS
     Route: 048

REACTIONS (1)
  - CONVULSION [None]
